FAERS Safety Report 23979843 (Version 1)
Quarter: 2024Q2

REPORT INFORMATION
  Report Type: Spontaneous
  Country: IN (occurrence: IN)
  Receive Date: 20240617
  Receipt Date: 20240617
  Transmission Date: 20240716
  Serious: Yes (Other)
  Sender: FDA-Public Use
  Company Number: IN-PFIZER INC-PV202400077041

PATIENT
  Age: 79 Year
  Sex: Female

DRUGS (1)
  1. LORLATINIB [Suspect]
     Active Substance: LORLATINIB
     Indication: Lung adenocarcinoma
     Dosage: 100 MG, 1X/DAY
     Route: 048
     Dates: start: 20240429

REACTIONS (2)
  - Hallucination [Unknown]
  - Cerebral ischaemia [Unknown]

NARRATIVE: CASE EVENT DATE: 20240101
